FAERS Safety Report 10419003 (Version 1)
Quarter: 2014Q2

REPORT INFORMATION
  Report Type: Spontaneous
  Country: US (occurrence: None)
  Receive Date: 20140625
  Receipt Date: 20140625
  Transmission Date: 20141212
  Serious: No
  Sender: FDA-Public Use
  Company Number: A-US2014-96127

PATIENT
  Age: 69 Year
  Sex: Female

DRUGS (3)
  1. OPSUMIT (MACITENTAN) [Suspect]
     Indication: CONNECTIVE TISSUE DISORDER
     Route: 048
     Dates: start: 20140319
  2. REMODULIN (TREPROSTINIL SODIUM) [Concomitant]
  3. ROICIGAUT (ROICIGAUT) [Concomitant]

REACTIONS (7)
  - Nausea [None]
  - Vomiting [None]
  - Diarrhoea [None]
  - Sinusitis [None]
  - Pulmonary congestion [None]
  - Hypotension [None]
  - Malaise [None]
